FAERS Safety Report 18470747 (Version 2)
Quarter: 2020Q4

REPORT INFORMATION
  Report Type: Spontaneous
  Country: GB (occurrence: GB)
  Receive Date: 20201106
  Receipt Date: 20201107
  Transmission Date: 20210114
  Serious: Yes (Hospitalization, Other)
  Sender: FDA-Public Use
  Company Number: GB-TEVA-2020-GB-1844856

PATIENT
  Age: 82 Year
  Sex: Male
  Weight: 94.6 kg

DRUGS (10)
  1. OTOMIZE [DEXAMETHASONE\NEOMYCIN SULFATE] [Concomitant]
     Active Substance: DEXAMETHASONE\NEOMYCIN SULFATE
     Dates: start: 20201001
  2. CLOPIDOGREL [Concomitant]
     Active Substance: CLOPIDOGREL BISULFATE
     Dosage: MEDIDOSE
     Route: 048
     Dates: start: 20200731
  3. OMEPRAZOLE. [Concomitant]
     Active Substance: OMEPRAZOLE
     Dosage: WHILE TAKING PREDNISOLONE - MEDIDOSE
     Route: 048
     Dates: start: 20200731
  4. ISOSORBIDE MONONITRATE. [Suspect]
     Active Substance: ISOSORBIDE MONONITRATE
     Dosage: 40 MG
     Route: 048
     Dates: start: 20061110
  5. PREDNISOLONE. [Concomitant]
     Active Substance: PREDNISOLONE
     Dosage: MAINTENANCE DOSE AS ADVISED BY RHEUMATOLOGY - MEDIDOSE
     Route: 048
     Dates: start: 20200731
  6. ATORVASTATIN [Concomitant]
     Active Substance: ATORVASTATIN
     Dosage: MEDIDOSE
     Route: 048
     Dates: start: 20200731
  7. ALENDRONIC ACID [Concomitant]
     Active Substance: ALENDRONIC ACID
     Dosage: WHILST TAKING STEROID (TAKE 30MINUTES AFTER WAKING  ?NOTES FOR PATIENT: DO NOT
     Route: 048
     Dates: start: 20200901
  8. GLICLAZIDE [Concomitant]
     Active Substance: GLICLAZIDE
     Indication: DIABETES MELLITUS
     Dosage: 1 TABLET TWICE DAILY  (NEW DOSE 120MG TWICE A DAY AS DIABETIC CLINIC) - MEDIDOSE. 40MG AND 80MG
     Route: 048
     Dates: start: 20200731
  9. EVACAL D3 CHEWABLE [Concomitant]
     Dosage: MEDIDOSE. 1500MG/400UNIT
     Route: 048
     Dates: start: 20200731
  10. ALOGLIPTIN. [Concomitant]
     Active Substance: ALOGLIPTIN
     Dosage: MEDIDOSE
     Route: 048
     Dates: start: 20200731

REACTIONS (1)
  - Migraine [Recovered/Resolved]

NARRATIVE: CASE EVENT DATE: 20201002
